FAERS Safety Report 20597839 (Version 1)
Quarter: 2022Q1

REPORT INFORMATION
  Report Type: Spontaneous
  Country: CA (occurrence: CA)
  Receive Date: 20220315
  Receipt Date: 20220315
  Transmission Date: 20220423
  Serious: Yes (Other)
  Sender: FDA-Public Use
  Company Number: CA-PFIZER INC-202200381388

PATIENT
  Age: 76 Year
  Sex: Male

DRUGS (18)
  1. HYDROMORPHONE HYDROCHLORIDE [Suspect]
     Active Substance: HYDROMORPHONE HYDROCHLORIDE
     Indication: Analgesic therapy
  2. VITAMIN D3 [Concomitant]
     Active Substance: CHOLECALCIFEROL
  3. TYLENOL [Concomitant]
     Active Substance: ACETAMINOPHEN
  4. PLAVIX [Concomitant]
     Active Substance: CLOPIDOGREL BISULFATE
  5. PANTOPRAZOLE SODIUM [Concomitant]
     Active Substance: PANTOPRAZOLE SODIUM
  6. OSCAL [CALCIUM CARBONATE] [Concomitant]
  7. MINERALS\VITAMINS [Concomitant]
     Active Substance: MINERALS\VITAMINS
  8. LASIX [Concomitant]
     Active Substance: FUROSEMIDE
  9. K-DUR [Concomitant]
     Active Substance: POTASSIUM CHLORIDE
  10. IMDUR [Concomitant]
     Active Substance: ISOSORBIDE MONONITRATE
  11. HUMULIN R [Concomitant]
     Active Substance: INSULIN HUMAN
  12. GRAVOL [Concomitant]
     Active Substance: DIMENHYDRINATE
  13. ENTRESTO [Concomitant]
     Active Substance: SACUBITRIL\VALSARTAN
  14. DILAUDID [Concomitant]
     Active Substance: HYDROMORPHONE HYDROCHLORIDE
  15. GLICLAZIDE [Concomitant]
     Active Substance: GLICLAZIDE
  16. CYANOCOBALAMIN [Concomitant]
     Active Substance: CYANOCOBALAMIN
  17. BISOPROLOL [Concomitant]
     Active Substance: BISOPROLOL
  18. ASPIRIN [Concomitant]
     Active Substance: ASPIRIN

REACTIONS (6)
  - Cerebral hypoperfusion [Recovered/Resolved]
  - Facial paralysis [Recovered/Resolved]
  - Blood pressure decreased [Recovered/Resolved]
  - Dysarthria [Recovered/Resolved]
  - Monoparesis [Recovered/Resolved]
  - Paraesthesia [Recovered/Resolved]
